FAERS Safety Report 16502505 (Version 1)
Quarter: 2019Q3

REPORT INFORMATION
  Report Type: Spontaneous
  Country: US (occurrence: US)
  Receive Date: 20190630
  Receipt Date: 20190630
  Transmission Date: 20191004
  Serious: No
  Sender: FDA-Public Use
  Company Number: None

PATIENT
  Age: 4 Year
  Sex: Male
  Weight: 11.25 kg

DRUGS (1)
  1. MIRALAX [Suspect]
     Active Substance: POLYETHYLENE GLYCOL 3350
     Indication: CONSTIPATION

REACTIONS (5)
  - Anxiety [None]
  - Abnormal behaviour [None]
  - Irritability [None]
  - Mood swings [None]
  - Off label use [None]

NARRATIVE: CASE EVENT DATE: 20190628
